FAERS Safety Report 4424559-3 (Version None)
Quarter: 2004Q3

REPORT INFORMATION
  Report Type: 
  Country: None (occurrence: None)
  Receive Date: 20040719
  Receipt Date: 20031119
  Transmission Date: 20050211
  Serious: Yes (Hospitalization)
  Sender: FDA-Public Use
  Company Number: 186736

PATIENT
  Age: 51 Year
  Sex: Female
  Weight: 56.6996 kg

DRUGS (5)
  1. AVONEX [Suspect]
     Indication: MULTIPLE SCLEROSIS
     Dosage: 30 MC QW IM
     Route: 030
     Dates: start: 19970101
  2. KEPPRA [Concomitant]
  3. LAMICTAL [Concomitant]
  4. DILANTIN [Concomitant]
  5. GABITRIL [Concomitant]

REACTIONS (1)
  - CONVULSION [None]
